FAERS Safety Report 25340599 (Version 1)
Quarter: 2025Q2

REPORT INFORMATION
  Report Type: Spontaneous
  Country: FR (occurrence: FR)
  Receive Date: 20250521
  Receipt Date: 20250521
  Transmission Date: 20250716
  Serious: Yes (Hospitalization, Other)
  Sender: SANOFI AVENTIS
  Company Number: None

PATIENT
  Age: 73 Year
  Sex: Female
  Weight: 96 kg

DRUGS (2)
  1. LOVENOX [Suspect]
     Active Substance: ENOXAPARIN SODIUM
     Indication: Deep vein thrombosis
     Dosage: 0.800ML QD
     Route: 058
     Dates: start: 20250331, end: 20250401
  2. INNOHEP [Suspect]
     Active Substance: TINZAPARIN SODIUM
     Indication: Deep vein thrombosis
     Dosage: 0.9 ML, QD (1 INJECTION DE 0,9ML)
     Route: 058
     Dates: start: 20250402, end: 20250402

REACTIONS (3)
  - Heparin-induced thrombocytopenia test [Not Recovered/Not Resolved]
  - Anti-platelet factor 4 antibody test [Not Recovered/Not Resolved]
  - Heparin-induced thrombocytopenia [Recovering/Resolving]

NARRATIVE: CASE EVENT DATE: 20250402
